FAERS Safety Report 7211252-7 (Version None)
Quarter: 2010Q4

REPORT INFORMATION
  Report Type: 
  Country: None (occurrence: None)
  Receive Date: 20101228
  Receipt Date: 20101222
  Transmission Date: 20110411
  Serious: Yes (Other)
  Sender: FDA-Public Use
  Company Number: CAN-2010-0001302

PATIENT

DRUGS (10)
  1. LIDOCAINE [Suspect]
  2. OXYCODONE HCL/NALOXONE HCL CR TAB20/10MG [Suspect]
     Dates: start: 20090330, end: 20100111
  3. OXYCODONE HCL/NALONE HCL TAB 10/5MG [Suspect]
     Dates: start: 20090330, end: 20100111
  4. OXYCONTIN [Suspect]
  5. TRAMACET (PARACETAMOL, TRAMADOL HYDOCOCHLORIDE) [Suspect]
  6. DICLECTIN [Suspect]
  7. FLEXERIL [Suspect]
  8. CLOMID [Suspect]
  9. CELEXA [Suspect]
  10. IMOVANE (ZOPICLONE) [Suspect]

REACTIONS (2)
  - DRUG WITHDRAWAL SYNDROME NEONATAL [None]
  - MATERNAL DRUGS AFFECTING FOETUS [None]
